FAERS Safety Report 14452970 (Version 1)
Quarter: 2018Q1

REPORT INFORMATION
  Report Type: Spontaneous
  Country: US (occurrence: US)
  Receive Date: 20180129
  Receipt Date: 20180129
  Transmission Date: 20180509
  Serious: No
  Sender: FDA-Public Use
  Company Number: US-PFIZER INC-2018034699

PATIENT
  Age: 69 Year
  Sex: Male
  Weight: 105 kg

DRUGS (1)
  1. DOFETILIDE. [Suspect]
     Active Substance: DOFETILIDE
     Indication: ATRIAL FIBRILLATION
     Dosage: 500 UG, 1 CAPSULE EVERY 12 HOURS
     Route: 048
     Dates: end: 2017

REACTIONS (1)
  - Therapeutic response changed [Recovered/Resolved]

NARRATIVE: CASE EVENT DATE: 2017
